FAERS Safety Report 8179864-4 (Version None)
Quarter: 2012Q1

REPORT INFORMATION
  Report Type: 
  Country: None (occurrence: None)
  Receive Date: 20120302
  Receipt Date: 20120229
  Transmission Date: 20120608
  Serious: Yes (Other)
  Sender: FDA-Public Use
  Company Number: US-JNJFOC-2010002710

PATIENT
  Sex: Male

DRUGS (3)
  1. ACETAMINOPHEN [Suspect]
     Route: 065
  2. ACETAMINOPHEN [Suspect]
     Indication: PRODUCT USED FOR UNKNOWN INDICATION
     Route: 065
  3. ROLAIDS TAB [Suspect]
     Indication: PRODUCT USED FOR UNKNOWN INDICATION
     Dosage: DAILY DOSE TEXT: 6 TABLETS UNSPECIFIED
     Route: 048

REACTIONS (5)
  - URINARY TRACT INFECTION [None]
  - PROSTATOMEGALY [None]
  - ACTIVITIES OF DAILY LIVING IMPAIRED [None]
  - PRODUCT QUALITY ISSUE [None]
  - PHARYNGITIS STREPTOCOCCAL [None]
